FAERS Safety Report 10204190 (Version 1)
Quarter: 2014Q2

REPORT INFORMATION
  Report Type: Spontaneous
  Country: US (occurrence: US)
  Receive Date: 20140529
  Receipt Date: 20140529
  Transmission Date: 20141212
  Serious: Yes (Life-Threatening)
  Sender: FDA-Public Use
  Company Number: US-ACTAVIS-2014-11384

PATIENT
  Age: 60 Year
  Sex: Female

DRUGS (4)
  1. 5-FLUOROURACIL                     /00098801/ [Suspect]
     Indication: COLON CANCER METASTATIC
     Dosage: 2400 MG/M2, UNK, OVER 46 HOURS
     Route: 042
  2. 5-FLUOROURACIL                     /00098801/ [Suspect]
     Dosage: 400 MG/M2, UNK, PUSH
     Route: 042
  3. LEUCOVORIN                         /00566701/ [Concomitant]
     Indication: COLON CANCER METASTATIC
     Dosage: 400 MG/M2, UNK
     Route: 065
  4. OXALIPLATIN (ATLLC) [Suspect]
     Indication: COLON CANCER METASTATIC
     Dosage: 85 MG/M2, UNK

REACTIONS (17)
  - Pancytopenia [Recovered/Resolved]
  - Clostridium difficile infection [Unknown]
  - Large intestine perforation [Unknown]
  - Peritonitis [Unknown]
  - Dehydration [Unknown]
  - Mucosal inflammation [Unknown]
  - Oesophagitis [Unknown]
  - Blood urea increased [Unknown]
  - International normalised ratio increased [Unknown]
  - Coagulation factor VII level decreased [Unknown]
  - Blood potassium decreased [Unknown]
  - Blood albumin decreased [Unknown]
  - Blood phosphorus decreased [Unknown]
  - Blood alkaline phosphatase increased [Unknown]
  - Blood lactate dehydrogenase increased [Unknown]
  - Prothrombin time prolonged [Unknown]
  - Toxicity to various agents [Unknown]
